FAERS Safety Report 17861192 (Version 5)
Quarter: 2021Q2

REPORT INFORMATION
  Report Type: Spontaneous
  Country: US (occurrence: US)
  Receive Date: 20200604
  Receipt Date: 20210607
  Transmission Date: 20210717
  Serious: No
  Sender: FDA-Public Use
  Company Number: US-HARMONY BIOSCIENCES-2020HMY00189

PATIENT
  Age: 52 Year
  Sex: Female
  Weight: 54.42 kg

DRUGS (17)
  1. ALLEGRA D?12 HOUR [Suspect]
     Active Substance: FEXOFENADINE HYDROCHLORIDE\PSEUDOEPHEDRINE HYDROCHLORIDE
     Indication: SEASONAL ALLERGY
     Dosage: UNK
     Dates: end: 202004
  2. BONE HEALTH SUPPLEMENT [Concomitant]
  3. WAKIX [Suspect]
     Active Substance: PITOLISANT HYDROCHLORIDE
     Indication: NARCOLEPSY
     Dosage: 8.9 MG, 1X/DAY
     Route: 048
     Dates: start: 20200221, end: 20200222
  4. WAKIX [Suspect]
     Active Substance: PITOLISANT HYDROCHLORIDE
     Indication: NARCOLEPSY
     Dosage: 17.8 MG, 1X/DAY
     Route: 048
     Dates: start: 202002, end: 202002
  5. WAKIX [Suspect]
     Active Substance: PITOLISANT HYDROCHLORIDE
     Indication: CATAPLEXY
  6. MULTIVITAMINS [Concomitant]
     Active Substance: VITAMINS
  7. HYDROCORTISONE?ALOE [Concomitant]
  8. CETIRIZINE [Suspect]
     Active Substance: CETIRIZINE HYDROCHLORIDE
     Indication: DRY MOUTH
     Dosage: 1 DOSAGE UNITS, EVERY 48 HOURS (EVERY OTHER NIGHT)
     Route: 048
     Dates: end: 202103
  9. WAKIX [Suspect]
     Active Substance: PITOLISANT HYDROCHLORIDE
     Indication: CATAPLEXY
  10. CALCIUM PLUS D3 ER [Concomitant]
  11. WAKIX [Suspect]
     Active Substance: PITOLISANT HYDROCHLORIDE
     Indication: CATAPLEXY
     Dosage: 4.45 MG, 1X/DAY
     Route: 048
     Dates: start: 20200223, end: 20200223
  12. WAKIX [Suspect]
     Active Substance: PITOLISANT HYDROCHLORIDE
     Indication: HYPERSOMNIA
     Dosage: 35.6 MG, 1X/DAY
     Route: 048
     Dates: start: 202002
  13. XYREM [Suspect]
     Active Substance: SODIUM OXYBATE
     Dosage: UNK UNK, TWICE A NIGHT
  14. CETIRIZINE [Suspect]
     Active Substance: CETIRIZINE HYDROCHLORIDE
     Dosage: 2 DOSAGE UNITS, 1X/DAY IN THE MORNING
     Route: 048
     Dates: start: 20210324
  15. WAKIX [Suspect]
     Active Substance: PITOLISANT HYDROCHLORIDE
     Indication: HYPERSOMNIA
     Dosage: 8.9 MG, 1X/DAY
     Route: 048
     Dates: start: 20200224, end: 20200227
  16. WAKIX [Suspect]
     Active Substance: PITOLISANT HYDROCHLORIDE
     Indication: NARCOLEPSY
     Dosage: 35.6 MG, 1X/DAY EVERY MORNING
     Route: 048
     Dates: start: 202002
  17. FLONASE ALLERGY RELIEF [Concomitant]
     Active Substance: FLUTICASONE PROPIONATE

REACTIONS (35)
  - Nausea [Not Recovered/Not Resolved]
  - Dry mouth [Not Recovered/Not Resolved]
  - Dyspepsia [Not Recovered/Not Resolved]
  - Foreign body in throat [Not Recovered/Not Resolved]
  - Hot flush [Not Recovered/Not Resolved]
  - Lip exfoliation [Unknown]
  - Ear discomfort [Unknown]
  - Flatulence [Recovering/Resolving]
  - Discomfort [Unknown]
  - Headache [Not Recovered/Not Resolved]
  - Inappropriate schedule of product administration [Recovered/Resolved]
  - Genital herpes [Recovering/Resolving]
  - Sinus congestion [Not Recovered/Not Resolved]
  - Chapped lips [Unknown]
  - Myalgia [Unknown]
  - Product administration error [Recovered/Resolved]
  - Dry skin [Recovered/Resolved]
  - Drug interaction [Unknown]
  - Labelled drug-drug interaction medication error [Recovered/Resolved]
  - Pruritus [Recovered/Resolved]
  - Pain [Recovering/Resolving]
  - Sleep disorder [Not Recovered/Not Resolved]
  - Conjunctivitis [Not Recovered/Not Resolved]
  - Seasonal allergy [Not Recovered/Not Resolved]
  - Retching [Not Recovered/Not Resolved]
  - Product dose omission issue [Not Recovered/Not Resolved]
  - Sneezing [Not Recovered/Not Resolved]
  - Eye discharge [Not Recovered/Not Resolved]
  - Muscle spasms [Unknown]
  - Oral pain [Not Recovered/Not Resolved]
  - Incorrect dose administered [Not Recovered/Not Resolved]
  - Upper-airway cough syndrome [Unknown]
  - Pain in jaw [Not Recovered/Not Resolved]
  - Insomnia [Recovered/Resolved]
  - Eczema [Not Recovered/Not Resolved]

NARRATIVE: CASE EVENT DATE: 2020
